FAERS Safety Report 6596857-9 (Version None)
Quarter: 2010Q1

REPORT INFORMATION
  Report Type: 
  Country: None (occurrence: None)
  Receive Date: 20100223
  Receipt Date: 20100217
  Transmission Date: 20100710
  Serious: Yes (Death)
  Sender: FDA-Public Use
  Company Number: SK-CELGENEUS-260-50794-10021417

PATIENT

DRUGS (1)
  1. VIDAZA [Suspect]
     Route: 050
     Dates: start: 20091201, end: 20091201

REACTIONS (1)
  - NEOPLASM PROGRESSION [None]
